FAERS Safety Report 22159114 (Version 3)
Quarter: 2023Q2

REPORT INFORMATION
  Report Type: Report from Study
  Country: US (occurrence: None)
  Receive Date: 20230331
  Receipt Date: 20230412
  Transmission Date: 20230722
  Serious: Yes (Hospitalization)
  Sender: FDA-Public Use
  Company Number: US-ROCHE-3320944

PATIENT
  Age: 66 Year
  Sex: Male
  Weight: 105.6 kg

DRUGS (13)
  1. ATEZOLIZUMAB [Suspect]
     Active Substance: ATEZOLIZUMAB
     Indication: Hepatocellular carcinoma
     Route: 041
     Dates: start: 20220923
  2. BEVACIZUMAB [Suspect]
     Active Substance: BEVACIZUMAB
     Indication: Hepatocellular carcinoma
     Route: 042
     Dates: start: 20220923, end: 20230109
  3. VOLTAREN [Concomitant]
     Active Substance: DICLOFENAC SODIUM
     Dates: start: 20230228
  4. PROCARDIA XL [Concomitant]
     Active Substance: NIFEDIPINE
     Dates: start: 20230124
  5. ULTRAM [Concomitant]
     Active Substance: TRAMADOL HYDROCHLORIDE
     Dates: start: 20230124, end: 20230313
  6. LASIX [Concomitant]
     Active Substance: FUROSEMIDE
     Dates: start: 20230115, end: 20230310
  7. HUMALOG KWIKPEN [Concomitant]
     Active Substance: INSULIN LISPRO
     Dates: start: 20230113
  8. APRESOLINE HYDROCHLORIDE [Concomitant]
     Active Substance: HYDRALAZINE HYDROCHLORIDE
     Dates: start: 20230110, end: 20230310
  9. CRESTOR [Concomitant]
     Active Substance: ROSUVASTATIN CALCIUM
     Dates: start: 20230104
  10. ISMO [Concomitant]
     Active Substance: ISOSORBIDE MONONITRATE
     Dates: start: 20221121, end: 20230310
  11. MONOKET [Concomitant]
     Active Substance: ISOSORBIDE MONONITRATE
     Dates: start: 20221121, end: 20230310
  12. PATANOL [Concomitant]
     Active Substance: OLOPATADINE HYDROCHLORIDE
     Dates: start: 20220810
  13. ZADITOR [Concomitant]
     Active Substance: KETOTIFEN FUMARATE
     Dates: start: 20220809

REACTIONS (1)
  - Cholecystitis [Unknown]
